FAERS Safety Report 21561509 (Version 2)
Quarter: 2022Q4

REPORT INFORMATION
  Report Type: Spontaneous
  Country: DE (occurrence: DE)
  Receive Date: 20221107
  Receipt Date: 20221122
  Transmission Date: 20230113
  Serious: Yes (Hospitalization, Other)
  Sender: FDA-Public Use
  Company Number: DE-BAYER-2022A154650

PATIENT
  Age: 88 Year
  Sex: Female
  Weight: 75 kg

DRUGS (2)
  1. ULTRAVIST [Suspect]
     Active Substance: IOPROMIDE
     Indication: Computerised tomogram head
     Dosage: 70 ML, ONCE
     Route: 042
     Dates: start: 20221019, end: 20221019
  2. ULTRAVIST [Suspect]
     Active Substance: IOPROMIDE
     Indication: Contusion

REACTIONS (2)
  - Shock [Recovered/Resolved]
  - Blood pressure immeasurable [Recovered/Resolved]

NARRATIVE: CASE EVENT DATE: 20221019
